FAERS Safety Report 18440922 (Version 1)
Quarter: 2020Q4

REPORT INFORMATION
  Report Type: Spontaneous
  Country: US (occurrence: US)
  Receive Date: 20201029
  Receipt Date: 20201029
  Transmission Date: 20210114
  Serious: Yes (Hospitalization)
  Sender: FDA-Public Use
  Company Number: None

PATIENT
  Age: 60 Year
  Sex: Female

DRUGS (19)
  1. SERTRALINE [Concomitant]
     Active Substance: SERTRALINE HYDROCHLORIDE
  2. LANSOPRAZOLE. [Concomitant]
     Active Substance: LANSOPRAZOLE
  3. METHOTREXATE. [Concomitant]
     Active Substance: METHOTREXATE
  4. NO DRUG NAME [Concomitant]
  5. SINGULAIR [Concomitant]
     Active Substance: MONTELUKAST SODIUM
  6. ALEVE [Concomitant]
     Active Substance: NAPROXEN SODIUM
  7. BONIVA [Concomitant]
     Active Substance: IBANDRONATE SODIUM
  8. FLOVENT HFA [Concomitant]
     Active Substance: FLUTICASONE PROPIONATE
  9. ACYCLOVIR. [Concomitant]
     Active Substance: ACYCLOVIR
  10. MONTELUKAST [Concomitant]
     Active Substance: MONTELUKAST SODIUM
  11. PANTROPRAZOLE [Concomitant]
  12. ENBREL [Suspect]
     Active Substance: ETANERCEPT
     Route: 058
     Dates: start: 20140102
  13. FLUTICASONE. [Concomitant]
     Active Substance: FLUTICASONE
  14. MULTIVITAMIN [Concomitant]
     Active Substance: VITAMINS
  15. ATENOLOL. [Concomitant]
     Active Substance: ATENOLOL
  16. NAPROXEN. [Concomitant]
     Active Substance: NAPROXEN
  17. BRANDRONATE [Concomitant]
  18. PREVACID [Concomitant]
     Active Substance: LANSOPRAZOLE
  19. ADVAIR DISKUS [Concomitant]
     Active Substance: FLUTICASONE PROPIONATE\SALMETEROL XINAFOATE

REACTIONS (1)
  - Infection [None]

NARRATIVE: CASE EVENT DATE: 20201001
